FAERS Safety Report 6222730-1 (Version None)
Quarter: 2009Q2

REPORT INFORMATION
  Report Type: 
  Country: None (occurrence: None)
  Receive Date: 20090609
  Receipt Date: 20090609
  Transmission Date: 20091009
  Serious: No
  Sender: FDA-Public Use
  Company Number: None

PATIENT
  Age: 10 Year
  Sex: Male
  Weight: 43.9989 kg

DRUGS (1)
  1. SINGULAIR [Suspect]
     Indication: MULTIPLE ALLERGIES
     Dosage: 1 CHEWABLE TABLET 1 TIME A DAY
     Dates: start: 20090504, end: 20090607

REACTIONS (4)
  - ANGER [None]
  - DEPRESSED MOOD [None]
  - MOOD ALTERED [None]
  - TEARFULNESS [None]
